FAERS Safety Report 4710878-X (Version None)
Quarter: 2005Q3

REPORT INFORMATION
  Report Type: 
  Country: None (occurrence: None)
  Receive Date: 20050711
  Receipt Date: 20050630
  Transmission Date: 20060218
  Serious: Yes (Other)
  Sender: FDA-Public Use
  Company Number: IE-GLAXOSMITHKLINE-B0386765A

PATIENT
  Age: 38 Year
  Sex: Male

DRUGS (5)
  1. SERETIDE [Suspect]
     Indication: ASTHMA
     Dosage: 500MCG PER DAY
     Route: 055
     Dates: start: 20050429, end: 20050510
  2. NEULIN [Concomitant]
     Indication: DRUG USE FOR UNKNOWN INDICATION
  3. SINGULAIR [Concomitant]
     Indication: DRUG USE FOR UNKNOWN INDICATION
  4. SALAMOL [Concomitant]
     Indication: DRUG USE FOR UNKNOWN INDICATION
  5. ANXICALM [Concomitant]
     Indication: DRUG USE FOR UNKNOWN INDICATION

REACTIONS (2)
  - HEADACHE [None]
  - HYPOAESTHESIA [None]
